FAERS Safety Report 11022349 (Version 1)
Quarter: 2015Q2

REPORT INFORMATION
  Report Type: Spontaneous
  Country: US (occurrence: US)
  Receive Date: 20150413
  Receipt Date: 20150413
  Transmission Date: 20150821
  Serious: Yes (Other)
  Sender: FDA-Public Use
  Company Number: US-ASTELLAS-2014US003507

PATIENT
  Age: 46 Year
  Sex: Female
  Weight: 131 kg

DRUGS (1)
  1. PROGRAF [Suspect]
     Active Substance: TACROLIMUS\TACROLIMUS ANHYDROUS
     Indication: RENAL TRANSPLANT
     Route: 048
     Dates: start: 20120402

REACTIONS (6)
  - Delirium [Recovered/Resolved]
  - Drug ineffective [Unknown]
  - Dizziness [Unknown]
  - Hallucination [Recovered/Resolved]
  - Transplant rejection [Unknown]
  - Malaise [Unknown]

NARRATIVE: CASE EVENT DATE: 20120402
